FAERS Safety Report 8138409-5 (Version None)
Quarter: 2012Q1

REPORT INFORMATION
  Report Type: 
  Country: None (occurrence: None)
  Receive Date: 20120215
  Receipt Date: 20120207
  Transmission Date: 20120608
  Serious: Yes (Hospitalization, Disabling)
  Sender: FDA-Public Use
  Company Number: ES-BAYER-2011-026059

PATIENT
  Age: 76 Year
  Sex: Male

DRUGS (7)
  1. SORAFANIB [Suspect]
     Indication: HEPATIC NEOPLASM MALIGNANT
     Dosage: DAILY DOSE 800 MG
     Dates: start: 20101006, end: 20110112
  2. ENALAPRIL MALEATE [Concomitant]
     Indication: HYPERTENSION
     Dosage: DAILY DOSE 20 MG
     Dates: start: 20080416
  3. INSULIN MIXTARD [INSULIN HUMAN] [Concomitant]
     Indication: DIABETES MELLITUS
     Dosage: 30 HM
     Dates: start: 20080416
  4. FUROSEMIDA [Concomitant]
     Indication: ASCITES
     Dosage: DAILY DOSE 40 MG
     Dates: start: 20101215
  5. OMEPRAZOLE [Concomitant]
     Dosage: UNK
     Dates: start: 20080416
  6. SIMVASTATIN [Concomitant]
     Dosage: UNK
     Dates: start: 20080416
  7. SORAFANIB [Suspect]
     Dosage: DAILY DOSE 400 MG
     Dates: start: 20110113, end: 20110215

REACTIONS (1)
  - ASCITES [None]
